FAERS Safety Report 5038057-X (Version None)
Quarter: 2006Q2

REPORT INFORMATION
  Report Type: 
  Country: None (occurrence: None)
  Receive Date: 20060531
  Receipt Date: 20001213
  Transmission Date: 20061013
  Serious: Yes (Other)
  Sender: FDA-Public Use
  Company Number: CVBU2000US00645

PATIENT
  Age: 72 Year
  Sex: Male

DRUGS (2)
  1. VOLTAREN [Suspect]
     Indication: CATARACT OPERATION
     Dosage: TOPICAL OPHTH.
     Route: 047
     Dates: start: 20001128, end: 20001204
  2. LOTEPREDNOL ETABONATE (LOTEPREDNOL ETABONATE) [Concomitant]

REACTIONS (1)
  - CORNEAL THINNING [None]
